FAERS Safety Report 8440736-9 (Version None)
Quarter: 2012Q2

REPORT INFORMATION
  Report Type: 
  Country: None (occurrence: None)
  Receive Date: 20120615
  Receipt Date: 20120608
  Transmission Date: 20120825
  Serious: Yes (Hospitalization)
  Sender: FDA-Public Use
  Company Number: FR-UCBSA-059405

PATIENT
  Sex: Male
  Weight: 0.87 kg

DRUGS (5)
  1. NITRAZEPAM [Suspect]
     Dosage: DAILY DOSE:25 MG
     Route: 064
     Dates: end: 20120311
  2. KEPPRA [Suspect]
     Route: 064
     Dates: end: 20120311
  3. TOPIRAMATE [Suspect]
     Route: 064
     Dates: end: 20120311
  4. CATAPRES [Concomitant]
     Dosage: UNKNOWN DOSE
     Dates: start: 20120315, end: 20120401
  5. TEGRETOL [Suspect]
     Route: 064
     Dates: end: 20120311

REACTIONS (9)
  - PNEUMATOSIS [None]
  - HYPOTONIA [None]
  - TACHYCARDIA FOETAL [None]
  - PREMATURE BABY [None]
  - BLOOD PRESSURE INCREASED [None]
  - FOETAL EXPOSURE DURING PREGNANCY [None]
  - FOETAL HEART RATE DECELERATION [None]
  - METABOLIC ACIDOSIS [None]
  - DRUG WITHDRAWAL SYNDROME NEONATAL [None]
